FAERS Safety Report 6945459-0 (Version None)
Quarter: 2010Q3

REPORT INFORMATION
  Report Type: 
  Country: None (occurrence: None)
  Receive Date: 20100827
  Receipt Date: 20100819
  Transmission Date: 20110219
  Serious: Yes (Other)
  Sender: FDA-Public Use
  Company Number: VE-ROCHE-722023

PATIENT
  Sex: Female
  Weight: 49 kg

DRUGS (2)
  1. PEGASYS [Suspect]
     Indication: HEPATITIS C
     Route: 058
     Dates: start: 20100313
  2. RIBAVIRIN [Concomitant]
     Indication: HEPATITIS C
     Dosage: DRUG: RIBAVIRINA
     Route: 048

REACTIONS (6)
  - ASTHENIA [None]
  - CONSTIPATION [None]
  - DIARRHOEA [None]
  - INSOMNIA [None]
  - NAUSEA [None]
  - PYREXIA [None]
